FAERS Safety Report 24014732 (Version 1)
Quarter: 2024Q2

REPORT INFORMATION
  Report Type: Spontaneous
  Country: JP (occurrence: JP)
  Receive Date: 20240626
  Receipt Date: 20240626
  Transmission Date: 20240715
  Serious: Yes (Other)
  Sender: FDA-Public Use
  Company Number: JP-Eisai-202403471_HAL-STS_P_1

PATIENT
  Age: 43 Year
  Sex: Female

DRUGS (1)
  1. HALAVEN [Suspect]
     Active Substance: ERIBULIN MESYLATE
     Indication: Uterine leiomyosarcoma
     Dosage: DOSE AND FREQUENCY UNKNOWN
     Route: 042

REACTIONS (3)
  - Diabetic ketoacidosis [Unknown]
  - Depressed level of consciousness [Unknown]
  - Haemorrhagic ascites [Unknown]
